FAERS Safety Report 16673300 (Version 1)
Quarter: 2019Q3

REPORT INFORMATION
  Report Type: Spontaneous
  Country: US (occurrence: US)
  Receive Date: 20190620
  Receipt Date: 20190620
  Transmission Date: 20191004
  Serious: No
  Sender: FDA-Public Use
  Company Number: None

PATIENT
  Age: 42 Year
  Sex: Female

DRUGS (9)
  1. PREDNISONE. [Concomitant]
     Active Substance: PREDNISONE
  2. ATARAX [Concomitant]
     Active Substance: HYDROXYZINE HYDROCHLORIDE
  3. CYMBALTA [Concomitant]
     Active Substance: DULOXETINE HYDROCHLORIDE
  4. STROMECTOL [Concomitant]
     Active Substance: IVERMECTIN
  5. ENBREL [Suspect]
     Active Substance: ETANERCEPT
     Indication: RHEUMATOID ARTHRITIS
     Route: 058
     Dates: start: 20190611
  6. FOLIC ACID. [Concomitant]
     Active Substance: FOLIC ACID
  7. PLAQUENIL [Concomitant]
     Active Substance: HYDROXYCHLOROQUINE SULFATE
  8. METHOTREXATE. [Concomitant]
     Active Substance: METHOTREXATE
  9. ZITHROMAX [Concomitant]
     Active Substance: AZITHROMYCIN DIHYDRATE

REACTIONS (8)
  - Product distribution issue [None]
  - Erythema [None]
  - Pruritus [None]
  - Pain [None]
  - Feeling hot [None]
  - Product dose omission [None]
  - Abdominal distension [None]
  - Rheumatoid arthritis [None]

NARRATIVE: CASE EVENT DATE: 20190613
